FAERS Safety Report 7166291-1 (Version None)
Quarter: 2010Q4

REPORT INFORMATION
  Report Type: 
  Country: None (occurrence: None)
  Receive Date: 20101216
  Receipt Date: 20101206
  Transmission Date: 20110411
  Serious: Yes (Death)
  Sender: FDA-Public Use
  Company Number: JP-PFIZER INC-2010155873

PATIENT
  Age: 78 Year
  Sex: Female
  Weight: 41.3 kg

DRUGS (5)
  1. CELECOXIB [Suspect]
     Indication: OSTEOARTHRITIS
     Dosage: 100 MG, 2X/DAY
     Route: 048
     Dates: start: 20100515, end: 20100903
  2. PREDONINE [Concomitant]
     Dosage: UNK
     Route: 048
     Dates: end: 20100831
  3. THYRADIN [Concomitant]
     Dosage: UNK
     Route: 048
     Dates: end: 20100831
  4. PLETAL [Concomitant]
     Dosage: UNK
     Route: 048
     Dates: end: 20100830
  5. MEVALOTIN [Concomitant]
     Dosage: UNK
     Route: 048
     Dates: end: 20100831

REACTIONS (4)
  - AORTIC VALVE INCOMPETENCE [None]
  - BLOOD PRESSURE INCREASED [None]
  - CARDIAC FAILURE CHRONIC [None]
  - RENAL FAILURE CHRONIC [None]
